FAERS Safety Report 8839843 (Version 1)
Quarter: 2012Q4

REPORT INFORMATION
  Report Type: 
  Country: US (occurrence: US)
  Receive Date: 20121015
  Receipt Date: 20121015
  Transmission Date: 20130627
  Serious: No
  Sender: FDA-Public Use
  Company Number: US-BRISTOL-MYERS SQUIBB COMPANY-16736001

PATIENT
  Age: 41 Year
  Sex: Female
  Weight: 66 kg

DRUGS (2)
  1. KENALOG-40 INJ [Suspect]
     Indication: BACK PAIN
     Dosage: Also received 40mgtherapy dates:11May12,1Jun12-28Jun12,heavy shot on29Jun12
     Dates: start: 20120427
  2. KENALOG-40 INJ [Suspect]
     Indication: NASOPHARYNGITIS
     Dosage: Also received 40mgtherapy dates:11May12,1Jun12-28Jun12,heavy shot on29Jun12
     Dates: start: 20120427

REACTIONS (3)
  - Menstruation irregular [Unknown]
  - Ovarian cyst [Unknown]
  - Drug ineffective [Unknown]
